FAERS Safety Report 10065960 (Version 2)
Quarter: 2014Q2

REPORT INFORMATION
  Report Type: Spontaneous
  Country: US (occurrence: US)
  Receive Date: 20140408
  Receipt Date: 20140408
  Transmission Date: 20141212
  Serious: Yes (Other)
  Sender: FDA-Public Use
  Company Number: US-ASTELLAS-2014US001244

PATIENT
  Sex: Female

DRUGS (3)
  1. VESICARE [Suspect]
     Indication: HYPERTONIC BLADDER
     Dosage: 5 MG, UID/QD
     Route: 048
     Dates: start: 201310
  2. MYRBETRIQ [Suspect]
     Indication: URINARY INCONTINENCE
     Dosage: 25 MG, UID/QD
     Route: 048
     Dates: start: 201401
  3. MYRBETRIQ [Suspect]
     Indication: HYPERTONIC BLADDER

REACTIONS (4)
  - Drug ineffective [Unknown]
  - Blood pressure increased [Recovered/Resolved]
  - Treatment noncompliance [Unknown]
  - Dysgeusia [Recovered/Resolved]
